FAERS Safety Report 23515192 (Version 1)
Quarter: 2024Q1

REPORT INFORMATION
  Report Type: Spontaneous
  Country: US (occurrence: US)
  Receive Date: 20240213
  Receipt Date: 20240213
  Transmission Date: 20240410
  Serious: No
  Sender: FDA-Public Use
  Company Number: US-ABBVIE-5632433

PATIENT
  Sex: Female

DRUGS (1)
  1. LUMIGAN [Suspect]
     Active Substance: BIMATOPROST
     Indication: Product used for unknown indication
     Dosage: FORM STRENGTH WAS 0.3MG/ML ? START DATE TEXT WAS 6 TO 7 YEARS AGO
     Route: 047
     Dates: end: 202312

REACTIONS (1)
  - Alopecia [Unknown]
